FAERS Safety Report 4983783-1 (Version None)
Quarter: 2006Q1

REPORT INFORMATION
  Report Type: 
  Country: None (occurrence: None)
  Receive Date: 20060302
  Receipt Date: 20060124
  Transmission Date: 20060701
  Serious: No
  Sender: FDA-Public Use
  Company Number: PHEH2006US01357

PATIENT
  Age: 57 Year
  Sex: Male

DRUGS (1)
  1. EXJADE [Suspect]
     Indication: BLOOD IRON INCREASED
     Dosage: 500 MG, 3 PER DAY, ORAL
     Route: 048
     Dates: start: 20060112, end: 20060124

REACTIONS (3)
  - BREAST SWELLING [None]
  - RASH [None]
  - URTICARIA [None]
